FAERS Safety Report 4347639-X (Version None)
Quarter: 2004Q2

REPORT INFORMATION
  Report Type: 
  Country: None (occurrence: None)
  Receive Date: 20040422
  Receipt Date: 20040412
  Transmission Date: 20050107
  Serious: Yes (Other)
  Sender: FDA-Public Use
  Company Number: 2004025064

PATIENT
  Age: 82 Year
  Sex: Female
  Weight: 63.5036 kg

DRUGS (6)
  1. LIPITOR [Suspect]
     Indication: BLOOD CHOLESTEROL INCREASED
     Dosage: 20 MG (DAILY), ORAL
     Route: 048
  2. QUINAPRIL HCL [Concomitant]
  3. CLOPIDOGREL (CLOPIDOGREL) [Concomitant]
  4. CARVEDILOL [Concomitant]
  5. RALOXIFENE (RALOXIFENE) [Concomitant]
  6. ACETYLSALICYLIC ACID SRT [Concomitant]

REACTIONS (5)
  - AMNESIA [None]
  - ANGIOPLASTY [None]
  - CHROMATURIA [None]
  - FLATULENCE [None]
  - MUSCLE CRAMP [None]
